APPROVED DRUG PRODUCT: COL-PROBENECID
Active Ingredient: COLCHICINE; PROBENECID
Strength: 0.5MG;500MG
Dosage Form/Route: TABLET;ORAL
Application: A084279 | Product #001 | TE Code: AB
Applicant: WATSON LABORATORIES INC
Approved: Approved Prior to Jan 1, 1982 | RLD: Yes | RS: Yes | Type: RX